FAERS Safety Report 11997437 (Version 1)
Quarter: 2016Q1

REPORT INFORMATION
  Report Type: Spontaneous
  Country: US (occurrence: None)
  Receive Date: 20160202
  Receipt Date: 20160202
  Transmission Date: 20160526
  Serious: No
  Sender: FDA-Public Use
  Company Number: None

PATIENT
  Age: 69 Year
  Sex: Female

DRUGS (3)
  1. MAGNESIUM [Concomitant]
     Active Substance: MAGNESIUM
  2. BROVANA [Concomitant]
     Active Substance: ARFORMOTEROL TARTRATE
  3. TOBRAMYCIN 300MG/5ML NEB TEVA [Suspect]
     Active Substance: TOBRAMYCIN
     Indication: RESPIRATORY DISORDER
     Route: 055
     Dates: start: 20140408

REACTIONS (2)
  - Tinnitus [None]
  - Laryngitis [None]

NARRATIVE: CASE EVENT DATE: 201601
